FAERS Safety Report 8297053-X (Version None)
Quarter: 2012Q2

REPORT INFORMATION
  Report Type: 
  Country: None (occurrence: None)
  Receive Date: 20120416
  Receipt Date: 20120330
  Transmission Date: 20120825
  Serious: Yes (Hospitalization)
  Sender: FDA-Public Use
  Company Number: TPA2011A06966

PATIENT
  Age: 73 Year
  Sex: Female

DRUGS (8)
  1. CRESTOR [Concomitant]
  2. CACIT VITAMINA D3 (COLECALCIFEROL, CALCIUM CARBONATE) [Concomitant]
  3. ADENURIC (FEBUXOSTAT) [Suspect]
     Indication: GOUT
     Dosage: 80 MG (80 MG, 1 IN 1 D), ORAL
     Route: 048
     Dates: start: 20110201
  4. LEVEMIR [Concomitant]
  5. KARDEGIC (ACETYLSALICYLIC LYSINE) [Concomitant]
  6. ACETAMINOPHEN [Concomitant]
  7. PREDNISONE TAB [Concomitant]
  8. PREVISCAN (FLUINDIONE) [Concomitant]

REACTIONS (4)
  - MYOCARDIAL ISCHAEMIA [None]
  - MYOCARDIAL INFARCTION [None]
  - ANGINA PECTORIS [None]
  - DYSPNOEA [None]
